FAERS Safety Report 25519019 (Version 3)
Quarter: 2025Q3

REPORT INFORMATION
  Report Type: Spontaneous
  Country: CA (occurrence: CA)
  Receive Date: 20250704
  Receipt Date: 20250711
  Transmission Date: 20251021
  Serious: Yes (Death, Other)
  Sender: BRISTOL-MYERS SQUIBB COMPANY
  Company Number: CA-BRISTOL-MYERS SQUIBB COMPANY-2025-094717

PATIENT
  Age: 40 Year
  Sex: Female
  Weight: 96 kg

DRUGS (606)
  1. TRIAMCINOLONE ACETONIDE [Suspect]
     Active Substance: TRIAMCINOLONE ACETONIDE
     Indication: Product used for unknown indication
     Route: 013
  2. TRIAMCINOLONE ACETONIDE [Suspect]
     Active Substance: TRIAMCINOLONE ACETONIDE
  3. TRIAMCINOLONE ACETONIDE [Suspect]
     Active Substance: TRIAMCINOLONE ACETONIDE
  4. TRIAMCINOLONE ACETONIDE [Suspect]
     Active Substance: TRIAMCINOLONE ACETONIDE
  5. TRIAMCINOLONE ACETONIDE [Suspect]
     Active Substance: TRIAMCINOLONE ACETONIDE
     Route: 014
  6. TRIAMCINOLONE ACETONIDE [Suspect]
     Active Substance: TRIAMCINOLONE ACETONIDE
     Route: 014
  7. TRIAMCINOLONE ACETONIDE [Suspect]
     Active Substance: TRIAMCINOLONE ACETONIDE
  8. TRIAMCINOLONE ACETONIDE [Suspect]
     Active Substance: TRIAMCINOLONE ACETONIDE
     Route: 014
  9. TRIAMCINOLONE ACETONIDE [Suspect]
     Active Substance: TRIAMCINOLONE ACETONIDE
     Route: 014
  10. TRIAMCINOLONE ACETONIDE [Suspect]
     Active Substance: TRIAMCINOLONE ACETONIDE
  11. TRIAMCINOLONE ACETONIDE [Suspect]
     Active Substance: TRIAMCINOLONE ACETONIDE
  12. ORENCIA [Suspect]
     Active Substance: ABATACEPT
     Indication: Rheumatoid arthritis
  13. ORENCIA [Suspect]
     Active Substance: ABATACEPT
  14. ORENCIA [Suspect]
     Active Substance: ABATACEPT
  15. ORENCIA [Suspect]
     Active Substance: ABATACEPT
  16. ORENCIA [Suspect]
     Active Substance: ABATACEPT
  17. ORENCIA [Suspect]
     Active Substance: ABATACEPT
  18. ORENCIA [Suspect]
     Active Substance: ABATACEPT
  19. ORENCIA [Suspect]
     Active Substance: ABATACEPT
  20. ORENCIA [Suspect]
     Active Substance: ABATACEPT
  21. ORENCIA [Suspect]
     Active Substance: ABATACEPT
     Indication: Product used for unknown indication
     Route: 042
  22. ORENCIA [Suspect]
     Active Substance: ABATACEPT
     Indication: Product used for unknown indication
     Route: 058
  23. VITAMIN C [Concomitant]
     Active Substance: ASCORBIC ACID
     Indication: Product used for unknown indication
  24. ACETAMINOPHEN [Concomitant]
     Active Substance: ACETAMINOPHEN
     Indication: Rheumatoid arthritis
  25. ACETAMINOPHEN [Concomitant]
     Active Substance: ACETAMINOPHEN
     Indication: Arthralgia
     Route: 058
  26. ACETAMINOPHEN [Concomitant]
     Active Substance: ACETAMINOPHEN
  27. ACETAMINOPHEN AND CODEINE [Concomitant]
     Active Substance: ACETAMINOPHEN\CODEINE PHOSPHATE
     Indication: Product used for unknown indication
  28. ACTEMRA [Concomitant]
     Active Substance: TOCILIZUMAB
     Indication: Product used for unknown indication
  29. ALENDRONATE SODIUM [Concomitant]
     Active Substance: ALENDRONATE SODIUM
     Indication: Rheumatoid arthritis
  30. ALENDRONATE SODIUM [Concomitant]
     Active Substance: ALENDRONATE SODIUM
  31. ALENDRONATE SODIUM [Concomitant]
     Active Substance: ALENDRONATE SODIUM
  32. ALENDRONATE SODIUM [Concomitant]
     Active Substance: ALENDRONATE SODIUM
     Route: 048
  33. ALENDRONATE SODIUM [Concomitant]
     Active Substance: ALENDRONATE SODIUM
     Route: 048
  34. ALENDRONATE SODIUM [Concomitant]
     Active Substance: ALENDRONATE SODIUM
  35. ALENDRONATE SODIUM [Concomitant]
     Active Substance: ALENDRONATE SODIUM
     Route: 048
  36. ALENDRONATE SODIUM [Concomitant]
     Active Substance: ALENDRONATE SODIUM
  37. ALENDRONATE SODIUM [Concomitant]
     Active Substance: ALENDRONATE SODIUM
  38. LEFLUNOMIDE [Concomitant]
     Active Substance: LEFLUNOMIDE
     Indication: Product used for unknown indication
  39. PREDNISONE [Concomitant]
     Active Substance: PREDNISONE
     Indication: Rheumatoid arthritis
     Route: 048
  40. PREDNISONE [Concomitant]
     Active Substance: PREDNISONE
  41. PREDNISONE [Concomitant]
     Active Substance: PREDNISONE
     Route: 048
  42. PREDNISONE [Concomitant]
     Active Substance: PREDNISONE
  43. PREDNISONE [Concomitant]
     Active Substance: PREDNISONE
     Route: 048
  44. PREDNISONE [Concomitant]
     Active Substance: PREDNISONE
  45. PREDNISONE [Concomitant]
     Active Substance: PREDNISONE
     Route: 048
  46. PREDNISONE [Concomitant]
     Active Substance: PREDNISONE
  47. PREDNISONE [Concomitant]
     Active Substance: PREDNISONE
     Route: 048
  48. PREDNISONE [Concomitant]
     Active Substance: PREDNISONE
     Route: 048
  49. ARAVA [Concomitant]
     Active Substance: LEFLUNOMIDE
     Indication: Rheumatoid arthritis
  50. ARAVA [Concomitant]
     Active Substance: LEFLUNOMIDE
     Route: 048
  51. ARAVA [Concomitant]
     Active Substance: LEFLUNOMIDE
     Route: 048
  52. ARAVA [Concomitant]
     Active Substance: LEFLUNOMIDE
     Route: 048
  53. ARAVA [Concomitant]
     Active Substance: LEFLUNOMIDE
  54. ARAVA [Concomitant]
     Active Substance: LEFLUNOMIDE
     Route: 048
  55. ARAVA [Concomitant]
     Active Substance: LEFLUNOMIDE
     Route: 048
  56. ATOMOXETINE HYDROCHLORIDE [Concomitant]
     Active Substance: ATOMOXETINE HYDROCHLORIDE
     Indication: Migraine
  57. ATOMOXETINE HYDROCHLORIDE [Concomitant]
     Active Substance: ATOMOXETINE HYDROCHLORIDE
  58. ATOMOXETINE HYDROCHLORIDE [Concomitant]
     Active Substance: ATOMOXETINE HYDROCHLORIDE
  59. ATOMOXETINE HYDROCHLORIDE [Concomitant]
     Active Substance: ATOMOXETINE HYDROCHLORIDE
  60. ATOMOXETINE HYDROCHLORIDE [Concomitant]
     Active Substance: ATOMOXETINE HYDROCHLORIDE
  61. ATOMOXETINE HYDROCHLORIDE [Concomitant]
     Active Substance: ATOMOXETINE HYDROCHLORIDE
  62. AZATHIOPRINE [Concomitant]
     Active Substance: AZATHIOPRINE
     Indication: Rheumatoid arthritis
  63. AZATHIOPRINE [Concomitant]
     Active Substance: AZATHIOPRINE
  64. AZATHIOPRINE [Concomitant]
     Active Substance: AZATHIOPRINE
  65. AZATHIOPRINE [Concomitant]
     Active Substance: AZATHIOPRINE
  66. BERINERT [Concomitant]
     Active Substance: HUMAN C1-ESTERASE INHIBITOR
     Indication: Product used for unknown indication
  67. BOTULINUM TOXIN TYPE A [Concomitant]
     Active Substance: BOTULINUM TOXIN TYPE A
     Indication: Product used for unknown indication
  68. BUTRANS [Concomitant]
     Active Substance: BUPRENORPHINE
     Indication: Product used for unknown indication
  69. BUTRANS [Concomitant]
     Active Substance: BUPRENORPHINE
  70. CALCIUM ASCORBATE [Concomitant]
     Active Substance: CALCIUM ASCORBATE
     Indication: Product used for unknown indication
  71. CALCIUM ASCORBATE [Concomitant]
     Active Substance: CALCIUM ASCORBATE
  72. CALCIUM CARBONATE [Concomitant]
     Active Substance: CALCIUM CARBONATE
     Indication: Product used for unknown indication
  73. CALCIUM CARBONATE\CHOLECALCIFEROL [Concomitant]
     Active Substance: CALCIUM CARBONATE\CHOLECALCIFEROL
     Indication: Product used for unknown indication
  74. CALCIUM CARBONATE\CHOLECALCIFEROL [Concomitant]
     Active Substance: CALCIUM CARBONATE\CHOLECALCIFEROL
  75. CALCIUM CITRATE [Concomitant]
     Active Substance: CALCIUM CITRATE
     Indication: Product used for unknown indication
  76. CALCIUM CITRATE [Concomitant]
     Active Substance: CALCIUM CITRATE
  77. CALCIUM CITRATE [Concomitant]
     Active Substance: CALCIUM CITRATE
  78. CALCIUM CITRATE [Concomitant]
     Active Substance: CALCIUM CITRATE
  79. CALCIUM CITRATE [Concomitant]
     Active Substance: CALCIUM CITRATE
  80. CALCIUM GLUBIONATE [Concomitant]
     Active Substance: CALCIUM GLUBIONATE
     Indication: Product used for unknown indication
  81. CALCIUM GLUBIONATE [Concomitant]
     Active Substance: CALCIUM GLUBIONATE
  82. CANDESARTAN [Concomitant]
     Active Substance: CANDESARTAN
     Indication: Migraine
     Route: 048
  83. CELECOXIB [Concomitant]
     Active Substance: CELECOXIB
     Indication: Product used for unknown indication
  84. CETIRIZINE [Concomitant]
     Active Substance: CETIRIZINE HYDROCHLORIDE
     Indication: Rheumatoid arthritis
  85. CETIRIZINE [Concomitant]
     Active Substance: CETIRIZINE HYDROCHLORIDE
     Route: 048
  86. CETIRIZINE [Concomitant]
     Active Substance: CETIRIZINE HYDROCHLORIDE
     Route: 048
  87. CETIRIZINE [Concomitant]
     Active Substance: CETIRIZINE HYDROCHLORIDE
  88. CETIRIZINE [Concomitant]
     Active Substance: CETIRIZINE HYDROCHLORIDE
     Route: 048
  89. CETIRIZINE [Concomitant]
     Active Substance: CETIRIZINE HYDROCHLORIDE
     Route: 048
  90. CETIRIZINE HYDROCHLORIDE [Concomitant]
     Active Substance: CETIRIZINE HYDROCHLORIDE
     Indication: Rheumatoid arthritis
  91. CETIRIZINE HYDROCHLORIDE [Concomitant]
     Active Substance: CETIRIZINE HYDROCHLORIDE
  92. CETIRIZINE HYDROCHLORIDE [Concomitant]
     Active Substance: CETIRIZINE HYDROCHLORIDE
  93. CETIRIZINE HYDROCHLORIDE [Concomitant]
     Active Substance: CETIRIZINE HYDROCHLORIDE
  94. CETIRIZINE HYDROCHLORIDE [Concomitant]
     Active Substance: CETIRIZINE HYDROCHLORIDE
  95. CHLORHEXIDINE GLUCONATE [Concomitant]
     Active Substance: CHLORHEXIDINE GLUCONATE
     Indication: Product used for unknown indication
  96. CHLORHEXIDINE GLUCONATE [Concomitant]
     Active Substance: CHLORHEXIDINE GLUCONATE
  97. CHLORHEXIDINE GLUCONATE [Concomitant]
     Active Substance: CHLORHEXIDINE GLUCONATE
     Route: 002
  98. CHLORHEXIDINE GLUCONATE\ISOPROPYL ALCOHOL [Concomitant]
     Active Substance: CHLORHEXIDINE GLUCONATE\ISOPROPYL ALCOHOL
     Indication: Product used for unknown indication
  99. CIMZIA [Concomitant]
     Active Substance: CERTOLIZUMAB PEGOL
     Indication: Rheumatoid arthritis
  100. CIMZIA [Concomitant]
     Active Substance: CERTOLIZUMAB PEGOL
     Indication: Psoriasis
     Route: 058
  101. CIMZIA [Concomitant]
     Active Substance: CERTOLIZUMAB PEGOL
  102. CIMZIA [Concomitant]
     Active Substance: CERTOLIZUMAB PEGOL
  103. CIMZIA [Concomitant]
     Active Substance: CERTOLIZUMAB PEGOL
  104. CIMZIA [Concomitant]
     Active Substance: CERTOLIZUMAB PEGOL
  105. CIMZIA [Concomitant]
     Active Substance: CERTOLIZUMAB PEGOL
  106. CIMZIA [Concomitant]
     Active Substance: CERTOLIZUMAB PEGOL
  107. CIMZIA [Concomitant]
     Active Substance: CERTOLIZUMAB PEGOL
     Route: 058
  108. CIMZIA [Concomitant]
     Active Substance: CERTOLIZUMAB PEGOL
     Route: 058
  109. CORTISONE ACETATE [Concomitant]
     Active Substance: CORTISONE ACETATE
     Indication: Rheumatoid arthritis
  110. CORTISONE ACETATE [Concomitant]
     Active Substance: CORTISONE ACETATE
  111. CORTISONE ACETATE [Concomitant]
     Active Substance: CORTISONE ACETATE
  112. CORTISONE ACETATE [Concomitant]
     Active Substance: CORTISONE ACETATE
  113. COSENTYX [Concomitant]
     Active Substance: SECUKINUMAB
     Indication: Psoriatic arthropathy
  114. COSENTYX [Concomitant]
     Active Substance: SECUKINUMAB
  115. COSENTYX [Concomitant]
     Active Substance: SECUKINUMAB
     Route: 048
  116. COSENTYX [Concomitant]
     Active Substance: SECUKINUMAB
  117. COSENTYX [Concomitant]
     Active Substance: SECUKINUMAB
  118. COSENTYX [Concomitant]
     Active Substance: SECUKINUMAB
     Route: 058
  119. COSENTYX [Concomitant]
     Active Substance: SECUKINUMAB
  120. CUPRIC OXIDE\FOLIC ACID\NIACIN\ZINC OXIDE [Concomitant]
     Active Substance: CUPRIC OXIDE\FOLIC ACID\NIACIN\ZINC OXIDE
     Indication: Product used for unknown indication
  121. DESOXIMETASONE [Concomitant]
     Active Substance: DESOXIMETASONE
     Indication: Rheumatoid arthritis
  122. DESOXIMETASONE [Concomitant]
     Active Substance: DESOXIMETASONE
  123. DESOXIMETASONE [Concomitant]
     Active Substance: DESOXIMETASONE
  124. DESOXIMETASONE [Concomitant]
     Active Substance: DESOXIMETASONE
     Route: 058
  125. DESOXIMETASONE [Concomitant]
     Active Substance: DESOXIMETASONE
  126. DESOXIMETASONE [Concomitant]
     Active Substance: DESOXIMETASONE
  127. DESOXIMETASONE [Concomitant]
     Active Substance: DESOXIMETASONE
  128. DESOXIMETASONE [Concomitant]
     Active Substance: DESOXIMETASONE
  129. DESOXIMETASONE [Concomitant]
     Active Substance: DESOXIMETASONE
  130. DESOXIMETASONE [Concomitant]
     Active Substance: DESOXIMETASONE
  131. DESOXIMETASONE [Concomitant]
     Active Substance: DESOXIMETASONE
     Route: 048
  132. DESOXIMETASONE [Concomitant]
     Active Substance: DESOXIMETASONE
     Route: 058
  133. DESOXIMETASONE [Concomitant]
     Active Substance: DESOXIMETASONE
     Route: 048
  134. DICLOFENAC [Concomitant]
     Active Substance: DICLOFENAC
     Indication: Product used for unknown indication
  135. DICLOFENAC POTASSIUM [Concomitant]
     Active Substance: DICLOFENAC POTASSIUM
     Indication: Product used for unknown indication
  136. DICLOFENAC SODIUM [Concomitant]
     Active Substance: DICLOFENAC SODIUM
     Indication: Product used for unknown indication
  137. DICLOFENAC SODIUM [Concomitant]
     Active Substance: DICLOFENAC SODIUM
  138. DICLOFENAC SODIUM [Concomitant]
     Active Substance: DICLOFENAC SODIUM
  139. DICLOFENAC SODIUM [Concomitant]
     Active Substance: DICLOFENAC SODIUM
  140. DICLOFENAC SODIUM [Concomitant]
     Active Substance: DICLOFENAC SODIUM
     Route: 058
  141. DOMPERIDONE MALEATE [Concomitant]
     Active Substance: DOMPERIDONE MALEATE
     Indication: Product used for unknown indication
  142. DOMPERIDONE MALEATE [Concomitant]
     Active Substance: DOMPERIDONE MALEATE
  143. DOMPERIDONE MALEATE [Concomitant]
     Active Substance: DOMPERIDONE MALEATE
  144. ENBREL [Concomitant]
     Active Substance: ETANERCEPT
     Indication: Rheumatoid arthritis
  145. ENBREL [Concomitant]
     Active Substance: ETANERCEPT
  146. ENBREL [Concomitant]
     Active Substance: ETANERCEPT
     Route: 058
  147. ENBREL [Concomitant]
     Active Substance: ETANERCEPT
     Route: 058
  148. ENBREL [Concomitant]
     Active Substance: ETANERCEPT
     Route: 058
  149. ENBREL [Concomitant]
     Active Substance: ETANERCEPT
  150. ENBREL [Concomitant]
     Active Substance: ETANERCEPT
     Route: 058
  151. ENBREL [Concomitant]
     Active Substance: ETANERCEPT
     Route: 058
  152. ENBREL [Concomitant]
     Active Substance: ETANERCEPT
     Route: 058
  153. ENBREL [Concomitant]
     Active Substance: ETANERCEPT
     Route: 058
  154. ENBREL [Concomitant]
     Active Substance: ETANERCEPT
     Route: 058
  155. ERELZI [Concomitant]
     Active Substance: ETANERCEPT-SZZS
     Indication: Rheumatoid arthritis
     Route: 058
  156. ERELZI [Concomitant]
     Active Substance: ETANERCEPT-SZZS
     Route: 058
  157. ERELZI [Concomitant]
     Active Substance: ETANERCEPT-SZZS
     Route: 058
  158. ERELZI [Concomitant]
     Active Substance: ETANERCEPT-SZZS
  159. ERELZI [Concomitant]
     Active Substance: ETANERCEPT-SZZS
     Route: 058
  160. ERELZI [Concomitant]
     Active Substance: ETANERCEPT-SZZS
  161. ERELZI [Concomitant]
     Active Substance: ETANERCEPT-SZZS
  162. ERENUMAB-AOOE [Concomitant]
     Active Substance: ERENUMAB-AOOE
     Indication: Migraine
     Route: 058
  163. ERGOCALCIFEROL [Concomitant]
     Active Substance: ERGOCALCIFEROL
     Indication: Product used for unknown indication
  164. ERGOCALCIFEROL [Concomitant]
     Active Substance: ERGOCALCIFEROL
  165. ERGOCALCIFEROL [Concomitant]
     Active Substance: ERGOCALCIFEROL
  166. ERGOCALCIFEROL [Concomitant]
     Active Substance: ERGOCALCIFEROL
  167. FLUMETHASONE [Concomitant]
     Active Substance: FLUMETHASONE
     Indication: Product used for unknown indication
  168. FLUMETHASONE PIVALATE [Concomitant]
     Active Substance: FLUMETHASONE PIVALATE
     Indication: Product used for unknown indication
  169. FLUMETHASONE PIVALATE [Concomitant]
     Active Substance: FLUMETHASONE PIVALATE
  170. FLUMETHASONE PIVALATE [Concomitant]
     Active Substance: FLUMETHASONE PIVALATE
  171. FLUMETHASONE PIVALATE [Concomitant]
     Active Substance: FLUMETHASONE PIVALATE
     Route: 058
  172. FOLIC ACID [Concomitant]
     Active Substance: FOLIC ACID
     Indication: Rheumatoid arthritis
  173. FOSAMAX [Concomitant]
     Active Substance: ALENDRONATE SODIUM
     Indication: Product used for unknown indication
  174. FOSAMAX [Concomitant]
     Active Substance: ALENDRONATE SODIUM
  175. FOSAMAX [Concomitant]
     Active Substance: ALENDRONATE SODIUM
  176. FOSAMAX [Concomitant]
     Active Substance: ALENDRONATE SODIUM
  177. FOSAMAX [Concomitant]
     Active Substance: ALENDRONATE SODIUM
  178. FOSAMAX [Concomitant]
     Active Substance: ALENDRONATE SODIUM
     Route: 048
  179. FOSAMAX [Concomitant]
     Active Substance: ALENDRONATE SODIUM
     Route: 048
  180. GOLD [Concomitant]
     Active Substance: GOLD
     Indication: Product used for unknown indication
  181. HAIR KERATIN AMINO ACIDS GOLD COMPLEX [Concomitant]
     Active Substance: HAIR KERATIN AMINO ACIDS GOLD COMPLEX
     Indication: Product used for unknown indication
  182. GOLD SODIUM THIOMALATE [Concomitant]
     Active Substance: GOLD SODIUM THIOMALATE
     Indication: Product used for unknown indication
  183. GOLD SODIUM THIOMALATE [Concomitant]
     Active Substance: GOLD SODIUM THIOMALATE
  184. HYDROCORTISONE BUTYRATE [Concomitant]
     Active Substance: HYDROCORTISONE BUTYRATE
     Indication: Product used for unknown indication
  185. HYDROCORTISONE PROBUTATE [Concomitant]
     Active Substance: HYDROCORTISONE PROBUTATE
     Indication: Product used for unknown indication
  186. HYDROXYCHLOROQUINE [Concomitant]
     Active Substance: HYDROXYCHLOROQUINE
     Indication: Product used for unknown indication
  187. HYDROXYCHLOROQUINE SULFATE [Concomitant]
     Active Substance: HYDROXYCHLOROQUINE SULFATE
     Indication: Rheumatoid arthritis
  188. HYDROXYCHLOROQUINE SULFATE [Concomitant]
     Active Substance: HYDROXYCHLOROQUINE SULFATE
     Route: 048
  189. HYDROXYCHLOROQUINE SULFATE [Concomitant]
     Active Substance: HYDROXYCHLOROQUINE SULFATE
  190. HYDROXYCHLOROQUINE SULFATE [Concomitant]
     Active Substance: HYDROXYCHLOROQUINE SULFATE
     Route: 058
  191. HYDROXYCHLOROQUINE SULFATE [Concomitant]
     Active Substance: HYDROXYCHLOROQUINE SULFATE
     Route: 048
  192. HYDROXYCHLOROQUINE SULFATE [Concomitant]
     Active Substance: HYDROXYCHLOROQUINE SULFATE
     Route: 013
  193. HYDROXYCHLOROQUINE SULFATE [Concomitant]
     Active Substance: HYDROXYCHLOROQUINE SULFATE
  194. HYDROXYCHLOROQUINE SULFATE [Concomitant]
     Active Substance: HYDROXYCHLOROQUINE SULFATE
     Route: 048
  195. HYDROXYCHLOROQUINE SULFATE [Concomitant]
     Active Substance: HYDROXYCHLOROQUINE SULFATE
  196. HYDROXYCHLOROQUINE SULFATE [Concomitant]
     Active Substance: HYDROXYCHLOROQUINE SULFATE
  197. HYDROXYCHLOROQUINE SULFATE [Concomitant]
     Active Substance: HYDROXYCHLOROQUINE SULFATE
  198. HYDROXYCHLOROQUINE SULFATE [Concomitant]
     Active Substance: HYDROXYCHLOROQUINE SULFATE
  199. HYDROXYCHLOROQUINE SULFATE [Concomitant]
     Active Substance: HYDROXYCHLOROQUINE SULFATE
     Route: 048
  200. HYDROXYCHLOROQUINE SULFATE [Concomitant]
     Active Substance: HYDROXYCHLOROQUINE SULFATE
     Route: 048
  201. HYDROXYCHLOROQUINE SULFATE [Concomitant]
     Active Substance: HYDROXYCHLOROQUINE SULFATE
  202. HYRIMOZ [Concomitant]
     Active Substance: ADALIMUMAB-ADAZ
     Indication: Rheumatoid arthritis
     Route: 058
  203. HYRIMOZ [Concomitant]
     Active Substance: ADALIMUMAB-ADAZ
     Route: 058
  204. HYRIMOZ [Concomitant]
     Active Substance: ADALIMUMAB-ADAZ
     Route: 058
  205. HYRIMOZ [Concomitant]
     Active Substance: ADALIMUMAB-ADAZ
     Route: 058
  206. HYRIMOZ [Concomitant]
     Active Substance: ADALIMUMAB-ADAZ
     Route: 058
  207. HYRIMOZ [Concomitant]
     Active Substance: ADALIMUMAB-ADAZ
     Route: 058
  208. HYRIMOZ [Concomitant]
     Active Substance: ADALIMUMAB-ADAZ
     Route: 058
  209. HYRIMOZ [Concomitant]
     Active Substance: ADALIMUMAB-ADAZ
     Route: 058
  210. INFLIXIMAB [Concomitant]
     Active Substance: INFLIXIMAB
     Indication: Rheumatoid arthritis
     Route: 042
  211. INFLIXIMAB [Concomitant]
     Active Substance: INFLIXIMAB
  212. INFLIXIMAB [Concomitant]
     Active Substance: INFLIXIMAB
  213. INFLIXIMAB [Concomitant]
     Active Substance: INFLIXIMAB
     Route: 042
  214. INFLIXIMAB [Concomitant]
     Active Substance: INFLIXIMAB
  215. INFLIXIMAB [Concomitant]
     Active Substance: INFLIXIMAB
  216. INFLIXIMAB [Concomitant]
     Active Substance: INFLIXIMAB
  217. INFLIXIMAB [Concomitant]
     Active Substance: INFLIXIMAB
  218. INFLIXIMAB [Concomitant]
     Active Substance: INFLIXIMAB
  219. INFLIXIMAB [Concomitant]
     Active Substance: INFLIXIMAB
  220. INFLIXIMAB [Concomitant]
     Active Substance: INFLIXIMAB
  221. INFLIXIMAB [Concomitant]
     Active Substance: INFLIXIMAB
  222. INFLIXIMAB [Concomitant]
     Active Substance: INFLIXIMAB
  223. INFLIXIMAB [Concomitant]
     Active Substance: INFLIXIMAB
     Route: 042
  224. INFLIXIMAB [Concomitant]
     Active Substance: INFLIXIMAB
  225. INFLIXIMAB [Concomitant]
     Active Substance: INFLIXIMAB
  226. INFLIXIMAB [Concomitant]
     Active Substance: INFLIXIMAB
  227. INFLIXIMAB [Concomitant]
     Active Substance: INFLIXIMAB
  228. INFLIXIMAB [Concomitant]
     Active Substance: INFLIXIMAB
  229. INFLIXIMAB [Concomitant]
     Active Substance: INFLIXIMAB
  230. INFLIXIMAB [Concomitant]
     Active Substance: INFLIXIMAB
  231. INFLIXIMAB [Concomitant]
     Active Substance: INFLIXIMAB
  232. ISOPROPYL ALCOHOL [Concomitant]
     Active Substance: ISOPROPYL ALCOHOL
     Indication: Product used for unknown indication
     Route: 061
  233. ISOPROPYL ALCOHOL [Concomitant]
     Active Substance: ISOPROPYL ALCOHOL
  234. KEVZARA [Concomitant]
     Active Substance: SARILUMAB
     Indication: Product used for unknown indication
  235. KEVZARA [Concomitant]
     Active Substance: SARILUMAB
  236. LAMICTAL [Concomitant]
     Active Substance: LAMOTRIGINE
     Indication: Product used for unknown indication
  237. LAMICTAL [Concomitant]
     Active Substance: LAMOTRIGINE
  238. LAMICTAL [Concomitant]
     Active Substance: LAMOTRIGINE
  239. LAMICTAL [Concomitant]
     Active Substance: LAMOTRIGINE
  240. LAMICTAL [Concomitant]
     Active Substance: LAMOTRIGINE
     Route: 048
  241. MAGNESIUM CITRATE [Concomitant]
     Active Substance: MAGNESIUM CITRATE
     Indication: Product used for unknown indication
  242. MAGNESIUM CITRATE [Concomitant]
     Active Substance: MAGNESIUM CITRATE
  243. MAGNESIUM CITRATE [Concomitant]
     Active Substance: MAGNESIUM CITRATE
  244. MAGNESIUM CITRATE [Concomitant]
     Active Substance: MAGNESIUM CITRATE
  245. MAGNESIUM CITRATE [Concomitant]
     Active Substance: MAGNESIUM CITRATE
  246. METFORMIN HYDROCHLORIDE [Concomitant]
     Active Substance: METFORMIN HYDROCHLORIDE
     Indication: Product used for unknown indication
  247. METFORMIN HYDROCHLORIDE [Concomitant]
     Active Substance: METFORMIN HYDROCHLORIDE
  248. METFORMIN HYDROCHLORIDE [Concomitant]
     Active Substance: METFORMIN HYDROCHLORIDE
  249. METHYLPREDNISOLONE ACETATE [Concomitant]
     Active Substance: METHYLPREDNISOLONE ACETATE
     Indication: Rheumatoid arthritis
     Route: 048
  250. METHYLPREDNISOLONE ACETATE [Concomitant]
     Active Substance: METHYLPREDNISOLONE ACETATE
     Route: 058
  251. METHYLPREDNISOLONE ACETATE [Concomitant]
     Active Substance: METHYLPREDNISOLONE ACETATE
     Route: 048
  252. METHYLPREDNISOLONE ACETATE [Concomitant]
     Active Substance: METHYLPREDNISOLONE ACETATE
  253. METHYLPREDNISOLONE ACETATE [Concomitant]
     Active Substance: METHYLPREDNISOLONE ACETATE
  254. METHYLPREDNISOLONE SODIUM SUCCINATE [Concomitant]
     Active Substance: METHYLPREDNISOLONE SODIUM SUCCINATE
     Indication: Product used for unknown indication
  255. METHYLPREDNISOLONE SODIUM SUCCINATE [Concomitant]
     Active Substance: METHYLPREDNISOLONE SODIUM SUCCINATE
  256. MINOCYCLINE HYDROCHLORIDE [Concomitant]
     Active Substance: MINOCYCLINE HYDROCHLORIDE
     Indication: Product used for unknown indication
     Route: 048
  257. MINOCYCLINE HYDROCHLORIDE [Concomitant]
     Active Substance: MINOCYCLINE HYDROCHLORIDE
  258. MINOCYCLINE HYDROCHLORIDE [Concomitant]
     Active Substance: MINOCYCLINE HYDROCHLORIDE
  259. MINOCYCLINE HYDROCHLORIDE [Concomitant]
     Active Substance: MINOCYCLINE HYDROCHLORIDE
  260. MINOCYCLINE HYDROCHLORIDE [Concomitant]
     Active Substance: MINOCYCLINE HYDROCHLORIDE
  261. MINOCYCLINE HYDROCHLORIDE [Concomitant]
     Active Substance: MINOCYCLINE HYDROCHLORIDE
  262. MINOCYCLINE HYDROCHLORIDE [Concomitant]
     Active Substance: MINOCYCLINE HYDROCHLORIDE
  263. MYOCHRYSINE [Concomitant]
     Active Substance: GOLD SODIUM THIOMALATE
     Indication: Rheumatoid arthritis
  264. MYOCHRYSINE [Concomitant]
     Active Substance: GOLD SODIUM THIOMALATE
  265. MYOCHRYSINE [Concomitant]
     Active Substance: GOLD SODIUM THIOMALATE
     Route: 048
  266. MYOCHRYSINE [Concomitant]
     Active Substance: GOLD SODIUM THIOMALATE
  267. MYOCHRYSINE [Concomitant]
     Active Substance: GOLD SODIUM THIOMALATE
  268. MYOCHRYSINE [Concomitant]
     Active Substance: GOLD SODIUM THIOMALATE
     Route: 048
  269. MYOCHRYSINE [Concomitant]
     Active Substance: GOLD SODIUM THIOMALATE
  270. MYOCHRYSINE [Concomitant]
     Active Substance: GOLD SODIUM THIOMALATE
  271. MYOCHRYSINE [Concomitant]
     Active Substance: GOLD SODIUM THIOMALATE
  272. MYOCHRYSINE [Concomitant]
     Active Substance: GOLD SODIUM THIOMALATE
  273. MYOCHRYSINE [Concomitant]
     Active Substance: GOLD SODIUM THIOMALATE
  274. MYOCHRYSINE [Concomitant]
     Active Substance: GOLD SODIUM THIOMALATE
  275. MYOCHRYSINE [Concomitant]
     Active Substance: GOLD SODIUM THIOMALATE
  276. MYOCHRYSINE [Concomitant]
     Active Substance: GOLD SODIUM THIOMALATE
  277. MYOCHRYSINE [Concomitant]
     Active Substance: GOLD SODIUM THIOMALATE
  278. MYOCHRYSINE [Concomitant]
     Active Substance: GOLD SODIUM THIOMALATE
  279. MYOCHRYSINE [Concomitant]
     Active Substance: GOLD SODIUM THIOMALATE
  280. MYOCHRYSINE [Concomitant]
     Active Substance: GOLD SODIUM THIOMALATE
  281. MYOCHRYSINE [Concomitant]
     Active Substance: GOLD SODIUM THIOMALATE
     Route: 030
  282. MYOCHRYSINE [Concomitant]
     Active Substance: GOLD SODIUM THIOMALATE
     Route: 030
  283. MYOCHRYSINE [Concomitant]
     Active Substance: GOLD SODIUM THIOMALATE
  284. MYOCHRYSINE [Concomitant]
     Active Substance: GOLD SODIUM THIOMALATE
  285. MYOCHRYSINE [Concomitant]
     Active Substance: GOLD SODIUM THIOMALATE
     Route: 030
  286. MYRBETRIQ [Concomitant]
     Active Substance: MIRABEGRON
     Indication: Rheumatoid arthritis
  287. MYRBETRIQ [Concomitant]
     Active Substance: MIRABEGRON
  288. MYRBETRIQ [Concomitant]
     Active Substance: MIRABEGRON
  289. MYRBETRIQ [Concomitant]
     Active Substance: MIRABEGRON
  290. MYRBETRIQ [Concomitant]
     Active Substance: MIRABEGRON
  291. NAPROXEN [Concomitant]
     Active Substance: NAPROXEN
     Indication: Product used for unknown indication
     Route: 048
  292. NAPROXEN [Concomitant]
     Active Substance: NAPROXEN
     Route: 048
  293. NAPROXEN [Concomitant]
     Active Substance: NAPROXEN
     Route: 048
  294. NAPROXEN [Concomitant]
     Active Substance: NAPROXEN
  295. NAPROXEN [Concomitant]
     Active Substance: NAPROXEN
     Route: 048
  296. NAPROXEN [Concomitant]
     Active Substance: NAPROXEN
  297. NAPROXEN [Concomitant]
     Active Substance: NAPROXEN
  298. NAPROXEN [Concomitant]
     Active Substance: NAPROXEN
  299. NAPROXEN [Concomitant]
     Active Substance: NAPROXEN
  300. NAPROXEN [Concomitant]
     Active Substance: NAPROXEN
  301. NAPROXEN SODIUM [Concomitant]
     Active Substance: NAPROXEN SODIUM
     Indication: Rheumatoid arthritis
  302. NAPROXEN SODIUM [Concomitant]
     Active Substance: NAPROXEN SODIUM
  303. NAPROXEN SODIUM [Concomitant]
     Active Substance: NAPROXEN SODIUM
  304. NUCALA [Concomitant]
     Active Substance: MEPOLIZUMAB
     Indication: Product used for unknown indication
  305. NUCALA [Concomitant]
     Active Substance: MEPOLIZUMAB
     Route: 048
  306. NUCALA [Concomitant]
     Active Substance: MEPOLIZUMAB
  307. NUCALA [Concomitant]
     Active Substance: MEPOLIZUMAB
  308. NUCALA [Concomitant]
     Active Substance: MEPOLIZUMAB
     Route: 048
  309. NUCALA [Concomitant]
     Active Substance: MEPOLIZUMAB
     Route: 048
  310. NUCALA [Concomitant]
     Active Substance: MEPOLIZUMAB
     Route: 048
  311. NUCALA [Concomitant]
     Active Substance: MEPOLIZUMAB
     Route: 048
  312. NUCALA [Concomitant]
     Active Substance: MEPOLIZUMAB
     Route: 048
  313. NUCALA [Concomitant]
     Active Substance: MEPOLIZUMAB
     Route: 048
  314. NUCALA [Concomitant]
     Active Substance: MEPOLIZUMAB
     Route: 048
  315. NUCALA [Concomitant]
     Active Substance: MEPOLIZUMAB
     Route: 048
  316. NUCALA [Concomitant]
     Active Substance: MEPOLIZUMAB
     Route: 048
  317. NUCALA [Concomitant]
     Active Substance: MEPOLIZUMAB
     Route: 048
  318. NUCALA [Concomitant]
     Active Substance: MEPOLIZUMAB
     Route: 048
  319. NUCALA [Concomitant]
     Active Substance: MEPOLIZUMAB
     Route: 048
  320. NUCALA [Concomitant]
     Active Substance: MEPOLIZUMAB
  321. NUCALA [Concomitant]
     Active Substance: MEPOLIZUMAB
     Route: 048
  322. NUCALA [Concomitant]
     Active Substance: MEPOLIZUMAB
  323. NUCALA [Concomitant]
     Active Substance: MEPOLIZUMAB
  324. NUCALA [Concomitant]
     Active Substance: MEPOLIZUMAB
     Route: 048
  325. NUCALA [Concomitant]
     Active Substance: MEPOLIZUMAB
  326. NUCALA [Concomitant]
     Active Substance: MEPOLIZUMAB
  327. OTEZLA [Concomitant]
     Active Substance: APREMILAST
     Indication: Rheumatoid arthritis
  328. OXYCODONE [Concomitant]
     Active Substance: OXYCODONE
     Indication: Product used for unknown indication
  329. OXYCODONE [Concomitant]
     Active Substance: OXYCODONE
  330. PHTHALYLSULFATHIAZOLE [Concomitant]
     Active Substance: PHTHALYLSULFATHIAZOLE
     Indication: Rheumatoid arthritis
     Route: 058
  331. PHTHALYLSULFATHIAZOLE [Concomitant]
     Active Substance: PHTHALYLSULFATHIAZOLE
     Route: 058
  332. PHTHALYLSULFATHIAZOLE [Concomitant]
     Active Substance: PHTHALYLSULFATHIAZOLE
  333. PHTHALYLSULFATHIAZOLE [Concomitant]
     Active Substance: PHTHALYLSULFATHIAZOLE
  334. PHTHALYLSULFATHIAZOLE [Concomitant]
     Active Substance: PHTHALYLSULFATHIAZOLE
  335. PHTHALYLSULFATHIAZOLE [Concomitant]
     Active Substance: PHTHALYLSULFATHIAZOLE
  336. PHTHALYLSULFATHIAZOLE [Concomitant]
     Active Substance: PHTHALYLSULFATHIAZOLE
  337. PHTHALYLSULFATHIAZOLE [Concomitant]
     Active Substance: PHTHALYLSULFATHIAZOLE
  338. PHTHALYLSULFATHIAZOLE [Concomitant]
     Active Substance: PHTHALYLSULFATHIAZOLE
     Route: 048
  339. PHTHALYLSULFATHIAZOLE [Concomitant]
     Active Substance: PHTHALYLSULFATHIAZOLE
     Route: 048
  340. PHTHALYLSULFATHIAZOLE [Concomitant]
     Active Substance: PHTHALYLSULFATHIAZOLE
     Route: 058
  341. PHTHALYLSULFATHIAZOLE [Concomitant]
     Active Substance: PHTHALYLSULFATHIAZOLE
  342. PHTHALYLSULFATHIAZOLE [Concomitant]
     Active Substance: PHTHALYLSULFATHIAZOLE
  343. PHTHALYLSULFATHIAZOLE [Concomitant]
     Active Substance: PHTHALYLSULFATHIAZOLE
  344. PHTHALYLSULFATHIAZOLE [Concomitant]
     Active Substance: PHTHALYLSULFATHIAZOLE
  345. PHTHALYLSULFATHIAZOLE [Concomitant]
     Active Substance: PHTHALYLSULFATHIAZOLE
  346. PHTHALYLSULFATHIAZOLE [Concomitant]
     Active Substance: PHTHALYLSULFATHIAZOLE
  347. PHTHALYLSULFATHIAZOLE [Concomitant]
     Active Substance: PHTHALYLSULFATHIAZOLE
  348. PHTHALYLSULFATHIAZOLE [Concomitant]
     Active Substance: PHTHALYLSULFATHIAZOLE
     Route: 048
  349. PHTHALYLSULFATHIAZOLE [Concomitant]
     Active Substance: PHTHALYLSULFATHIAZOLE
  350. PHTHALYLSULFATHIAZOLE [Concomitant]
     Active Substance: PHTHALYLSULFATHIAZOLE
     Route: 048
  351. PREDNISONE [Concomitant]
     Active Substance: PREDNISONE
     Indication: Rheumatoid arthritis
  352. PREDNISONE [Concomitant]
     Active Substance: PREDNISONE
  353. PREDNISONE [Concomitant]
     Active Substance: PREDNISONE
  354. PREDNISONE [Concomitant]
     Active Substance: PREDNISONE
  355. PREDNISONE [Concomitant]
     Active Substance: PREDNISONE
  356. PREDNISONE [Concomitant]
     Active Substance: PREDNISONE
  357. PREDNISONE [Concomitant]
     Active Substance: PREDNISONE
  358. PREDNISONE [Concomitant]
     Active Substance: PREDNISONE
  359. PREDNISONE [Concomitant]
     Active Substance: PREDNISONE
  360. PREDNISONE [Concomitant]
     Active Substance: PREDNISONE
  361. PREDNISONE [Concomitant]
     Active Substance: PREDNISONE
  362. PREDNISONE [Concomitant]
     Active Substance: PREDNISONE
  363. PREDNISONE [Concomitant]
     Active Substance: PREDNISONE
  364. PREDNISONE [Concomitant]
     Active Substance: PREDNISONE
  365. PSEUDOEPHEDRINE [Concomitant]
     Active Substance: PSEUDOEPHEDRINE
     Indication: Rheumatoid arthritis
  366. PSEUDOEPHEDRINE [Concomitant]
     Active Substance: PSEUDOEPHEDRINE
  367. PSEUDOEPHEDRINE [Concomitant]
     Active Substance: PSEUDOEPHEDRINE
  368. PSEUDOEPHEDRINE [Concomitant]
     Active Substance: PSEUDOEPHEDRINE
  369. PSEUDOEPHEDRINE [Concomitant]
     Active Substance: PSEUDOEPHEDRINE
  370. PSEUDOEPHEDRINE HYDROCHLORIDE [Concomitant]
     Active Substance: PSEUDOEPHEDRINE HYDROCHLORIDE
     Indication: Rheumatoid arthritis
  371. PSEUDOEPHEDRINE HYDROCHLORIDE [Concomitant]
     Active Substance: PSEUDOEPHEDRINE HYDROCHLORIDE
  372. PSEUDOEPHEDRINE HYDROCHLORIDE [Concomitant]
     Active Substance: PSEUDOEPHEDRINE HYDROCHLORIDE
     Route: 058
  373. PSEUDOEPHEDRINE HYDROCHLORIDE [Concomitant]
     Active Substance: PSEUDOEPHEDRINE HYDROCHLORIDE
     Route: 058
  374. PSEUDOEPHEDRINE HYDROCHLORIDE [Concomitant]
     Active Substance: PSEUDOEPHEDRINE HYDROCHLORIDE
     Route: 058
  375. PSEUDOEPHEDRINE HYDROCHLORIDE [Concomitant]
     Active Substance: PSEUDOEPHEDRINE HYDROCHLORIDE
     Route: 058
  376. PSEUDOEPHEDRINE HYDROCHLORIDE [Concomitant]
     Active Substance: PSEUDOEPHEDRINE HYDROCHLORIDE
     Route: 058
  377. PSEUDOEPHEDRINE HYDROCHLORIDE [Concomitant]
     Active Substance: PSEUDOEPHEDRINE HYDROCHLORIDE
  378. PSEUDOEPHEDRINE HYDROCHLORIDE [Concomitant]
     Active Substance: PSEUDOEPHEDRINE HYDROCHLORIDE
  379. PSEUDOEPHEDRINE HYDROCHLORIDE [Concomitant]
     Active Substance: PSEUDOEPHEDRINE HYDROCHLORIDE
  380. PSEUDOEPHEDRINE HYDROCHLORIDE [Concomitant]
     Active Substance: PSEUDOEPHEDRINE HYDROCHLORIDE
  381. PSEUDOEPHEDRINE HYDROCHLORIDE [Concomitant]
     Active Substance: PSEUDOEPHEDRINE HYDROCHLORIDE
  382. PSEUDOEPHEDRINE HYDROCHLORIDE [Concomitant]
     Active Substance: PSEUDOEPHEDRINE HYDROCHLORIDE
  383. PSEUDOEPHEDRINE HYDROCHLORIDE [Concomitant]
     Active Substance: PSEUDOEPHEDRINE HYDROCHLORIDE
  384. PSEUDOEPHEDRINE HYDROCHLORIDE [Concomitant]
     Active Substance: PSEUDOEPHEDRINE HYDROCHLORIDE
  385. RAMIPRIL [Concomitant]
     Active Substance: RAMIPRIL
     Indication: Rheumatoid arthritis
     Route: 016
  386. RAMIPRIL [Concomitant]
     Active Substance: RAMIPRIL
     Route: 016
  387. RAMIPRIL [Concomitant]
     Active Substance: RAMIPRIL
  388. RAMIPRIL [Concomitant]
     Active Substance: RAMIPRIL
  389. RAMIPRIL [Concomitant]
     Active Substance: RAMIPRIL
  390. RAMIPRIL [Concomitant]
     Active Substance: RAMIPRIL
  391. RAMIPRIL [Concomitant]
     Active Substance: RAMIPRIL
  392. RAMIPRIL [Concomitant]
     Active Substance: RAMIPRIL
  393. RANITIDINE HYDROCHLORIDE [Concomitant]
     Active Substance: RANITIDINE HYDROCHLORIDE
     Indication: Product used for unknown indication
  394. RANITIDINE HYDROCHLORIDE [Concomitant]
     Active Substance: RANITIDINE HYDROCHLORIDE
     Route: 042
  395. RANITIDINE HYDROCHLORIDE [Concomitant]
     Active Substance: RANITIDINE HYDROCHLORIDE
  396. RANITIDINE HYDROCHLORIDE [Concomitant]
     Active Substance: RANITIDINE HYDROCHLORIDE
  397. RANITIDINE HYDROCHLORIDE [Concomitant]
     Active Substance: RANITIDINE HYDROCHLORIDE
  398. RANITIDINE HYDROCHLORIDE [Concomitant]
     Active Substance: RANITIDINE HYDROCHLORIDE
  399. RANITIDINE HYDROCHLORIDE [Concomitant]
     Active Substance: RANITIDINE HYDROCHLORIDE
  400. REMICADE [Concomitant]
     Active Substance: INFLIXIMAB
     Indication: Rheumatoid arthritis
     Route: 042
  401. REMICADE [Concomitant]
     Active Substance: INFLIXIMAB
  402. REMICADE [Concomitant]
     Active Substance: INFLIXIMAB
  403. REMICADE [Concomitant]
     Active Substance: INFLIXIMAB
     Route: 043
  404. REMICADE [Concomitant]
     Active Substance: INFLIXIMAB
     Dosage: POWDER FOR SOLUTION FOR INJECTION/INFUSION
  405. REMICADE [Concomitant]
     Active Substance: INFLIXIMAB
     Dosage: POWDER FOR SOLUTION FOR INJECTION/INFUSION
  406. REMICADE [Concomitant]
     Active Substance: INFLIXIMAB
     Route: 043
  407. REMICADE [Concomitant]
     Active Substance: INFLIXIMAB
     Route: 058
  408. REMICADE [Concomitant]
     Active Substance: INFLIXIMAB
     Dosage: POWDER FOR SOLUTION FOR INJECTION/INFUSION
  409. RITUXIMAB [Concomitant]
     Active Substance: RITUXIMAB
     Indication: Rheumatoid arthritis
  410. RITUXIMAB [Concomitant]
     Active Substance: RITUXIMAB
  411. RITUXIMAB [Concomitant]
     Active Substance: RITUXIMAB
  412. RITUXIMAB [Concomitant]
     Active Substance: RITUXIMAB
  413. RITUXIMAB [Concomitant]
     Active Substance: RITUXIMAB
     Route: 042
  414. RITUXIMAB [Concomitant]
     Active Substance: RITUXIMAB
  415. RITUXIMAB [Concomitant]
     Active Substance: RITUXIMAB
     Route: 019
  416. RITUXIMAB [Concomitant]
     Active Substance: RITUXIMAB
     Route: 016
  417. RITUXIMAB [Concomitant]
     Active Substance: RITUXIMAB
  418. RITUXIMAB [Concomitant]
     Active Substance: RITUXIMAB
  419. RITUXIMAB [Concomitant]
     Active Substance: RITUXIMAB
  420. RITUXIMAB [Concomitant]
     Active Substance: RITUXIMAB
  421. RITUXIMAB [Concomitant]
     Active Substance: RITUXIMAB
  422. RITUXIMAB [Concomitant]
     Active Substance: RITUXIMAB
  423. RITUXIMAB [Concomitant]
     Active Substance: RITUXIMAB
  424. RITUXIMAB [Concomitant]
     Active Substance: RITUXIMAB
     Route: 042
  425. RITUXIMAB [Concomitant]
     Active Substance: RITUXIMAB
     Route: 016
  426. RITUXIMAB [Concomitant]
     Active Substance: RITUXIMAB
     Route: 040
  427. RITUXIMAB [Concomitant]
     Active Substance: RITUXIMAB
     Route: 042
  428. RITUXIMAB [Concomitant]
     Active Substance: RITUXIMAB
     Route: 043
  429. RITUXIMAB [Concomitant]
     Active Substance: RITUXIMAB
     Route: 040
  430. RITUXIMAB [Concomitant]
     Active Substance: RITUXIMAB
  431. RITUXIMAB [Concomitant]
     Active Substance: RITUXIMAB
     Route: 016
  432. RITUXIMAB [Concomitant]
     Active Substance: RITUXIMAB
     Route: 042
  433. RITUXIMAB [Concomitant]
     Active Substance: RITUXIMAB
     Route: 042
  434. RITUXIMAB [Concomitant]
     Active Substance: RITUXIMAB
     Route: 042
  435. RITUXIMAB [Concomitant]
     Active Substance: RITUXIMAB
     Route: 042
  436. RITUXIMAB [Concomitant]
     Active Substance: RITUXIMAB
  437. RITUXIMAB [Concomitant]
     Active Substance: RITUXIMAB
     Route: 042
  438. RITUXIMAB [Concomitant]
     Active Substance: RITUXIMAB
     Route: 042
  439. RITUXIMAB [Concomitant]
     Active Substance: RITUXIMAB
  440. RITUXIMAB [Concomitant]
     Active Substance: RITUXIMAB
     Route: 042
  441. RITUXIMAB [Concomitant]
     Active Substance: RITUXIMAB
     Route: 042
  442. RITUXIMAB [Concomitant]
     Active Substance: RITUXIMAB
     Route: 042
  443. RITUXIMAB [Concomitant]
     Active Substance: RITUXIMAB
     Route: 019
  444. RITUXIMAB [Concomitant]
     Active Substance: RITUXIMAB
     Route: 040
  445. RITUXIMAB [Concomitant]
     Active Substance: RITUXIMAB
     Route: 040
  446. RITUXIMAB [Concomitant]
     Active Substance: RITUXIMAB
     Route: 042
  447. RITUXIMAB [Concomitant]
     Active Substance: RITUXIMAB
     Route: 042
  448. RITUXIMAB [Concomitant]
     Active Substance: RITUXIMAB
     Route: 042
  449. SULFASALAZINE [Concomitant]
     Active Substance: SULFASALAZINE
     Indication: Rheumatoid arthritis
     Route: 048
  450. SULFASALAZINE [Concomitant]
     Active Substance: SULFASALAZINE
     Route: 048
  451. SULFASALAZINE [Concomitant]
     Active Substance: SULFASALAZINE
  452. SULFASALAZINE [Concomitant]
     Active Substance: SULFASALAZINE
  453. SULFASALAZINE [Concomitant]
     Active Substance: SULFASALAZINE
     Route: 058
  454. SULFASALAZINE [Concomitant]
     Active Substance: SULFASALAZINE
     Route: 058
  455. SULFASALAZINE [Concomitant]
     Active Substance: SULFASALAZINE
  456. SULFASALAZINE [Concomitant]
     Active Substance: SULFASALAZINE
  457. SULFASALAZINE [Concomitant]
     Active Substance: SULFASALAZINE
  458. SULFASALAZINE [Concomitant]
     Active Substance: SULFASALAZINE
  459. DICLOFENAC SODIUM [Concomitant]
     Active Substance: DICLOFENAC SODIUM
     Indication: Product used for unknown indication
  460. HYDROCORTISONE [Concomitant]
     Active Substance: HYDROCORTISONE
     Indication: Product used for unknown indication
  461. LEFLUNOMIDE [Concomitant]
     Active Substance: LEFLUNOMIDE
     Indication: Rheumatoid arthritis
  462. LEFLUNOMIDE [Concomitant]
     Active Substance: LEFLUNOMIDE
     Route: 048
  463. LEFLUNOMIDE [Concomitant]
     Active Substance: LEFLUNOMIDE
     Route: 048
  464. LEFLUNOMIDE [Concomitant]
     Active Substance: LEFLUNOMIDE
  465. LEFLUNOMIDE [Concomitant]
     Active Substance: LEFLUNOMIDE
  466. LEFLUNOMIDE [Concomitant]
     Active Substance: LEFLUNOMIDE
     Route: 048
  467. LEFLUNOMIDE [Concomitant]
     Active Substance: LEFLUNOMIDE
  468. TOPIRAMATE [Concomitant]
     Active Substance: TOPIRAMATE
     Indication: Product used for unknown indication
  469. TOPIRAMATE [Concomitant]
     Active Substance: TOPIRAMATE
  470. SIMPONI [Concomitant]
     Active Substance: GOLIMUMAB
     Indication: Rheumatoid arthritis
     Route: 048
  471. SIMPONI [Concomitant]
     Active Substance: GOLIMUMAB
     Indication: Prostatic specific antigen
  472. SIMPONI [Concomitant]
     Active Substance: GOLIMUMAB
     Route: 058
  473. SIMPONI [Concomitant]
     Active Substance: GOLIMUMAB
     Route: 058
  474. SIMPONI [Concomitant]
     Active Substance: GOLIMUMAB
     Route: 058
  475. SIMPONI [Concomitant]
     Active Substance: GOLIMUMAB
     Route: 058
  476. SIMPONI [Concomitant]
     Active Substance: GOLIMUMAB
     Route: 058
  477. SIMPONI [Concomitant]
     Active Substance: GOLIMUMAB
  478. SIMPONI [Concomitant]
     Active Substance: GOLIMUMAB
  479. SIMPONI [Concomitant]
     Active Substance: GOLIMUMAB
  480. SIMPONI [Concomitant]
     Active Substance: GOLIMUMAB
  481. SIMPONI [Concomitant]
     Active Substance: GOLIMUMAB
  482. SIMPONI [Concomitant]
     Active Substance: GOLIMUMAB
  483. SIMPONI [Concomitant]
     Active Substance: GOLIMUMAB
  484. SIMPONI [Concomitant]
     Active Substance: GOLIMUMAB
  485. SIRUKUMAB [Concomitant]
     Active Substance: SIRUKUMAB
     Indication: Rheumatoid arthritis
     Route: 048
  486. SIRUKUMAB [Concomitant]
     Active Substance: SIRUKUMAB
     Indication: Prostatic specific antigen
  487. SIRUKUMAB [Concomitant]
     Active Substance: SIRUKUMAB
  488. GOLD SODIUM THIOMALATE [Concomitant]
     Active Substance: GOLD SODIUM THIOMALATE
     Indication: Product used for unknown indication
     Route: 016
  489. GOLD SODIUM THIOMALATE [Concomitant]
     Active Substance: GOLD SODIUM THIOMALATE
  490. GOLD SODIUM THIOMALATE [Concomitant]
     Active Substance: GOLD SODIUM THIOMALATE
     Route: 058
  491. GOLD SODIUM THIOMALATE [Concomitant]
     Active Substance: GOLD SODIUM THIOMALATE
  492. GOLD SODIUM THIOMALATE [Concomitant]
     Active Substance: GOLD SODIUM THIOMALATE
     Route: 048
  493. GOLD SODIUM THIOMALATE [Concomitant]
     Active Substance: GOLD SODIUM THIOMALATE
     Route: 030
  494. GOLD SODIUM THIOMALATE [Concomitant]
     Active Substance: GOLD SODIUM THIOMALATE
     Route: 030
  495. GOLD SODIUM THIOMALATE [Concomitant]
     Active Substance: GOLD SODIUM THIOMALATE
     Route: 048
  496. GOLD SODIUM THIOMALATE [Concomitant]
     Active Substance: GOLD SODIUM THIOMALATE
  497. GOLD SODIUM THIOMALATE [Concomitant]
     Active Substance: GOLD SODIUM THIOMALATE
  498. SULFAMETHOXAZOLE\TRIMETHOPRIM [Concomitant]
     Active Substance: SULFAMETHOXAZOLE\TRIMETHOPRIM
     Indication: Rheumatoid arthritis
  499. SULFAMETHOXAZOLE\TRIMETHOPRIM [Concomitant]
     Active Substance: SULFAMETHOXAZOLE\TRIMETHOPRIM
     Route: 048
  500. SULFAMETHOXAZOLE\TRIMETHOPRIM [Concomitant]
     Active Substance: SULFAMETHOXAZOLE\TRIMETHOPRIM
     Route: 048
  501. SULFAMETHOXAZOLE\TRIMETHOPRIM [Concomitant]
     Active Substance: SULFAMETHOXAZOLE\TRIMETHOPRIM
     Route: 048
  502. SULFASALAZINE [Concomitant]
     Active Substance: SULFASALAZINE
     Indication: Product used for unknown indication
  503. TOFACITINIB [Concomitant]
     Active Substance: TOFACITINIB
     Indication: Rheumatoid arthritis
  504. TRAMADOL HYDROCHLORIDE [Concomitant]
     Active Substance: TRAMADOL HYDROCHLORIDE
     Indication: Rheumatoid arthritis
  505. TRAMADOL HYDROCHLORIDE [Concomitant]
     Active Substance: TRAMADOL HYDROCHLORIDE
  506. TRAMADOL HYDROCHLORIDE [Concomitant]
     Active Substance: TRAMADOL HYDROCHLORIDE
  507. TRAMADOL HYDROCHLORIDE [Concomitant]
     Active Substance: TRAMADOL HYDROCHLORIDE
  508. TRAMADOL HYDROCHLORIDE [Concomitant]
     Active Substance: TRAMADOL HYDROCHLORIDE
  509. XELJANZ [Concomitant]
     Active Substance: TOFACITINIB CITRATE
     Indication: Rheumatoid arthritis
  510. XELJANZ [Concomitant]
     Active Substance: TOFACITINIB CITRATE
     Route: 048
  511. XELJANZ [Concomitant]
     Active Substance: TOFACITINIB CITRATE
  512. XELJANZ [Concomitant]
     Active Substance: TOFACITINIB CITRATE
  513. XELJANZ [Concomitant]
     Active Substance: TOFACITINIB CITRATE
  514. XELJANZ [Concomitant]
     Active Substance: TOFACITINIB CITRATE
  515. XELJANZ [Concomitant]
     Active Substance: TOFACITINIB CITRATE
  516. XELJANZ [Concomitant]
     Active Substance: TOFACITINIB CITRATE
  517. XELJANZ [Concomitant]
     Active Substance: TOFACITINIB CITRATE
  518. XELJANZ [Concomitant]
     Active Substance: TOFACITINIB CITRATE
  519. XELJANZ [Concomitant]
     Active Substance: TOFACITINIB CITRATE
  520. XELJANZ [Concomitant]
     Active Substance: TOFACITINIB CITRATE
  521. XELJANZ [Concomitant]
     Active Substance: TOFACITINIB CITRATE
  522. XELJANZ [Concomitant]
     Active Substance: TOFACITINIB CITRATE
  523. XELJANZ [Concomitant]
     Active Substance: TOFACITINIB CITRATE
  524. XELJANZ [Concomitant]
     Active Substance: TOFACITINIB CITRATE
  525. XELJANZ [Concomitant]
     Active Substance: TOFACITINIB CITRATE
     Route: 030
  526. XELJANZ [Concomitant]
     Active Substance: TOFACITINIB CITRATE
     Route: 030
  527. XELJANZ [Concomitant]
     Active Substance: TOFACITINIB CITRATE
  528. XELJANZ [Concomitant]
     Active Substance: TOFACITINIB CITRATE
     Route: 048
  529. XELJANZ [Concomitant]
     Active Substance: TOFACITINIB CITRATE
     Route: 048
  530. XELJANZ [Concomitant]
     Active Substance: TOFACITINIB CITRATE
     Route: 048
  531. XELJANZ [Concomitant]
     Active Substance: TOFACITINIB CITRATE
     Route: 048
  532. XELJANZ [Concomitant]
     Active Substance: TOFACITINIB CITRATE
     Route: 048
  533. XELJANZ [Concomitant]
     Active Substance: TOFACITINIB CITRATE
     Route: 048
  534. XELJANZ [Concomitant]
     Active Substance: TOFACITINIB CITRATE
     Route: 048
  535. XELJANZ [Concomitant]
     Active Substance: TOFACITINIB CITRATE
  536. XELJANZ [Concomitant]
     Active Substance: TOFACITINIB CITRATE
  537. ALENDRONIC ACID [Concomitant]
     Active Substance: ALENDRONIC ACID
     Indication: Rheumatoid arthritis
  538. ALENDRONIC ACID [Concomitant]
     Active Substance: ALENDRONIC ACID
     Route: 048
  539. ALENDRONIC ACID [Concomitant]
     Active Substance: ALENDRONIC ACID
  540. AZATHIOPRINE SODIUM [Concomitant]
     Active Substance: AZATHIOPRINE SODIUM
     Indication: Rheumatoid arthritis
  541. AZATHIOPRINE SODIUM [Concomitant]
     Active Substance: AZATHIOPRINE SODIUM
  542. AZATHIOPRINE SODIUM [Concomitant]
     Active Substance: AZATHIOPRINE SODIUM
  543. AZATHIOPRINE SODIUM [Concomitant]
     Active Substance: AZATHIOPRINE SODIUM
  544. CELEBREX [Concomitant]
     Active Substance: CELECOXIB
     Indication: Product used for unknown indication
  545. CELEBREX [Concomitant]
     Active Substance: CELECOXIB
  546. CELEBREX [Concomitant]
     Active Substance: CELECOXIB
  547. CELEBREX [Concomitant]
     Active Substance: CELECOXIB
     Route: 048
  548. CELEBREX [Concomitant]
     Active Substance: CELECOXIB
     Route: 048
  549. CELEBREX [Concomitant]
     Active Substance: CELECOXIB
  550. DESOGESTREL AND ETHINYL ESTRADIOL [Concomitant]
     Active Substance: DESOGESTREL\ETHINYL ESTRADIOL
     Indication: Product used for unknown indication
  551. HYDROCORTISONE [Concomitant]
     Active Substance: HYDROCORTISONE
     Indication: Product used for unknown indication
  552. LEFLUNOMIDE [Concomitant]
     Active Substance: LEFLUNOMIDE
     Indication: Rheumatoid arthritis
  553. LEFLUNOMIDE [Concomitant]
     Active Substance: LEFLUNOMIDE
  554. LEFLUNOMIDE [Concomitant]
     Active Substance: LEFLUNOMIDE
  555. LEFLUNOMIDE [Concomitant]
     Active Substance: LEFLUNOMIDE
  556. LEFLUNOMIDE [Concomitant]
     Active Substance: LEFLUNOMIDE
  557. LEFLUNOMIDE [Concomitant]
     Active Substance: LEFLUNOMIDE
     Route: 048
  558. METHOTREXATE [Concomitant]
     Active Substance: METHOTREXATE
     Indication: Rheumatoid arthritis
  559. METHOTREXATE [Concomitant]
     Active Substance: METHOTREXATE
     Route: 048
  560. METHOTREXATE [Concomitant]
     Active Substance: METHOTREXATE
  561. METHOTREXATE [Concomitant]
     Active Substance: METHOTREXATE
  562. METHOTREXATE [Concomitant]
     Active Substance: METHOTREXATE
  563. METHOTREXATE [Concomitant]
     Active Substance: METHOTREXATE
  564. METHOTREXATE [Concomitant]
     Active Substance: METHOTREXATE
  565. METHOTREXATE [Concomitant]
     Active Substance: METHOTREXATE
     Route: 048
  566. METHOTREXATE [Concomitant]
     Active Substance: METHOTREXATE
  567. METHOTREXATE [Concomitant]
     Active Substance: METHOTREXATE
  568. METHOTREXATE [Concomitant]
     Active Substance: METHOTREXATE
     Route: 048
  569. METHOTREXATE [Concomitant]
     Active Substance: METHOTREXATE
     Route: 048
  570. METHOTREXATE [Concomitant]
     Active Substance: METHOTREXATE
     Route: 013
  571. METHOTREXATE [Concomitant]
     Active Substance: METHOTREXATE
  572. METHOTREXATE [Concomitant]
     Active Substance: METHOTREXATE
  573. METHOTREXATE [Concomitant]
     Active Substance: METHOTREXATE
     Route: 048
  574. METHOTREXATE [Concomitant]
     Active Substance: METHOTREXATE
  575. METHOTREXATE [Concomitant]
     Active Substance: METHOTREXATE
  576. METHOTREXATE [Concomitant]
     Active Substance: METHOTREXATE
     Route: 058
  577. METHOTREXATE [Concomitant]
     Active Substance: METHOTREXATE
     Route: 058
  578. METHOTREXATE [Concomitant]
     Active Substance: METHOTREXATE
     Route: 048
  579. METHOTREXATE [Concomitant]
     Active Substance: METHOTREXATE
  580. METHOTREXATE [Concomitant]
     Active Substance: METHOTREXATE
  581. METHOTREXATE [Concomitant]
     Active Substance: METHOTREXATE
     Route: 016
  582. METHOTREXATE [Concomitant]
     Active Substance: METHOTREXATE
     Route: 048
  583. METHOTREXATE [Concomitant]
     Active Substance: METHOTREXATE
     Route: 048
  584. METHOTREXATE [Concomitant]
     Active Substance: METHOTREXATE
     Route: 058
  585. METHOTREXATE [Concomitant]
     Active Substance: METHOTREXATE
     Route: 013
  586. METHOTREXATE [Concomitant]
     Active Substance: METHOTREXATE
  587. METHOTREXATE [Concomitant]
     Active Substance: METHOTREXATE
     Route: 048
  588. METHOTREXATE [Concomitant]
     Active Substance: METHOTREXATE
     Route: 048
  589. METHOTREXATE [Concomitant]
     Active Substance: METHOTREXATE
     Route: 058
  590. METHOTREXATE [Concomitant]
     Active Substance: METHOTREXATE
     Route: 048
  591. METHOTREXATE [Concomitant]
     Active Substance: METHOTREXATE
  592. METHOTREXATE [Concomitant]
     Active Substance: METHOTREXATE
  593. METHOTREXATE [Concomitant]
     Active Substance: METHOTREXATE
     Route: 048
  594. METHOTREXATE [Concomitant]
     Active Substance: METHOTREXATE
  595. NICOTINAMIDE [Concomitant]
     Active Substance: NIACINAMIDE
     Indication: Product used for unknown indication
  596. NICOTINAMIDE [Concomitant]
     Active Substance: NIACINAMIDE
  597. NUCALA [Concomitant]
     Active Substance: MEPOLIZUMAB
     Indication: Product used for unknown indication
  598. NUCALA [Concomitant]
     Active Substance: MEPOLIZUMAB
  599. NUCALA [Concomitant]
     Active Substance: MEPOLIZUMAB
  600. NUCALA [Concomitant]
     Active Substance: MEPOLIZUMAB
  601. TOPIRAMATE [Concomitant]
     Active Substance: TOPIRAMATE
     Indication: Product used for unknown indication
  602. TOPIRAMATE [Concomitant]
     Active Substance: TOPIRAMATE
  603. DICLOFENAC DIETHYLAMINE [Concomitant]
     Active Substance: DICLOFENAC DIETHYLAMINE
     Indication: Product used for unknown indication
     Route: 058
  604. DICLOFENAC DIETHYLAMINE [Concomitant]
     Active Substance: DICLOFENAC DIETHYLAMINE
  605. NAPROSYN [Concomitant]
     Active Substance: NAPROXEN
     Indication: Product used for unknown indication
  606. AIMOVIG [Concomitant]
     Active Substance: ERENUMAB-AOOE
     Indication: Product used for unknown indication

REACTIONS (1)
  - Death [Fatal]
